FAERS Safety Report 4882958-X (Version None)
Quarter: 2006Q1

REPORT INFORMATION
  Report Type: 
  Country: None (occurrence: None)
  Receive Date: 20060118
  Receipt Date: 20051125
  Transmission Date: 20060701
  Serious: Yes (Life-Threatening)
  Sender: FDA-Public Use
  Company Number: JP-BRISTOL-MYERS SQUIBB COMPANY-13194113

PATIENT
  Age: 10 Year
  Sex: Female

DRUGS (8)
  1. VEPESID [Suspect]
     Indication: RHABDOMYOSARCOMA
     Route: 041
     Dates: start: 20010508, end: 20011001
  2. ENDOXAN [Suspect]
     Indication: RHABDOMYOSARCOMA
     Route: 041
     Dates: start: 20010315, end: 20050618
  3. IFOMIDE [Suspect]
     Indication: RHABDOMYOSARCOMA
     Route: 041
     Dates: start: 20010315, end: 20011001
  4. ONCOVIN [Suspect]
     Indication: RHABDOMYOSARCOMA
     Route: 041
  5. THERARUBICIN [Suspect]
     Indication: RHABDOMYOSARCOMA
     Route: 041
     Dates: start: 20011027, end: 20020618
  6. COSMEGEN [Suspect]
     Indication: RHABDOMYOSARCOMA
     Route: 041
     Dates: start: 20010315, end: 20021029
  7. ADRIACIN [Concomitant]
     Route: 042
  8. RADIOTHERAPY [Concomitant]

REACTIONS (2)
  - LYMPHOMA [None]
  - TREATMENT RELATED SECONDARY MALIGNANCY [None]
